FAERS Safety Report 8914514 (Version 1)
Quarter: 2012Q4

REPORT INFORMATION
  Report Type: 
  Country: GB (occurrence: GB)
  Receive Date: 20121116
  Receipt Date: 20121116
  Transmission Date: 20130627
  Serious: Yes (Other)
  Sender: FDA-Public Use
  Company Number: GB-ROCHE-1155893

PATIENT
  Age: 35 Year
  Sex: Female
  Weight: 68.8 kg

DRUGS (2)
  1. XOLAIR [Suspect]
     Indication: ASTHMA
     Route: 058
     Dates: start: 20120319, end: 20120917
  2. XOLAIR [Suspect]
     Indication: ANAPHYLACTIC REACTION

REACTIONS (3)
  - Anaphylactic reaction [Recovered/Resolved]
  - Asthma [Not Recovered/Not Resolved]
  - Injection site erythema [Not Recovered/Not Resolved]
